FAERS Safety Report 11316538 (Version 1)
Quarter: 2015Q3

REPORT INFORMATION
  Report Type: Spontaneous
  Country: DK (occurrence: DK)
  Receive Date: 20150728
  Receipt Date: 20150728
  Transmission Date: 20151125
  Serious: Yes (Life-Threatening, Other)
  Sender: FDA-Public Use
  Company Number: DK-GLAXOSMITHKLINE-DK2015105722

PATIENT
  Age: 76 Year
  Sex: Female

DRUGS (7)
  1. ZINACEF [Suspect]
     Active Substance: CEFUROXIME SODIUM
     Indication: BETA HAEMOLYTIC STREPTOCOCCAL INFECTION
     Dosage: 1.5 G, TID
     Route: 042
     Dates: start: 20150713, end: 20150713
  2. NEOTIGASON [Concomitant]
     Active Substance: ACITRETIN
     Indication: PRODUCT USED FOR UNKNOWN INDICATION
     Dates: start: 20150420
  3. HYDROXYZINHYDROCHLORID [Concomitant]
     Indication: PRODUCT USED FOR UNKNOWN INDICATION
     Dates: start: 201504
  4. SERETIDE [Concomitant]
     Active Substance: FLUTICASONE FUROATE\SALMETEROL XINAFOATE
     Indication: PRODUCT USED FOR UNKNOWN INDICATION
     Dates: start: 201404
  5. SPIRIVA RESPIMAT [Concomitant]
     Active Substance: TIOTROPIUM BROMIDE
     Indication: PRODUCT USED FOR UNKNOWN INDICATION
     Dates: start: 201404
  6. PREDNISOLON DAK [Concomitant]
     Active Substance: PREDNISOLONE
     Indication: PRODUCT USED FOR UNKNOWN INDICATION
     Dates: start: 201404
  7. VESICARE [Concomitant]
     Active Substance: SOLIFENACIN SUCCINATE
     Indication: PRODUCT USED FOR UNKNOWN INDICATION
     Dates: start: 201504

REACTIONS (5)
  - Cardiac arrest [Recovered/Resolved]
  - Malaise [Recovered/Resolved]
  - Anaphylactic reaction [Recovered/Resolved]
  - Resuscitation [Recovered/Resolved]
  - Pulseless electrical activity [Recovered/Resolved]

NARRATIVE: CASE EVENT DATE: 20150713
